FAERS Safety Report 6998560-X (Version None)
Quarter: 2010Q3

REPORT INFORMATION
  Report Type: 
  Country: None (occurrence: None)
  Receive Date: 20100920
  Receipt Date: 20090903
  Transmission Date: 20110219
  Serious: No
  Sender: FDA-Public Use
  Company Number: US-ASTRAZENECA-2009SE11722

PATIENT
  Age: 50 Year
  Sex: Female

DRUGS (4)
  1. SEROQUEL XR [Suspect]
     Route: 048
  2. XANAX [Concomitant]
  3. ANTIHYPERTENSIVES [Concomitant]
  4. STATIN [Concomitant]

REACTIONS (1)
  - PSYCHOTIC DISORDER [None]
